FAERS Safety Report 4743276-3 (Version None)
Quarter: 2005Q3

REPORT INFORMATION
  Report Type: 
  Country: None (occurrence: None)
  Receive Date: 20050809
  Receipt Date: 20050728
  Transmission Date: 20060218
  Serious: Yes (Disabling, Other)
  Sender: FDA-Public Use
  Company Number: 200406403

PATIENT
  Age: 75 Year
  Sex: Female
  Weight: 68.0396 kg

DRUGS (3)
  1. PRED FORTE [Suspect]
     Indication: POSTOPERATIVE CARE
     Dosage: 1 DROP QID EYE
     Dates: start: 20030804
  2. ACULAR [Concomitant]
  3. VIGAMOX [Concomitant]

REACTIONS (10)
  - BLINDNESS UNILATERAL [None]
  - EYE PAIN [None]
  - FACTITIOUS DISORDER [None]
  - HEADACHE [None]
  - HYPERTENSION [None]
  - IMPLANT SITE NERVE INJURY [None]
  - POST PROCEDURAL COMPLICATION [None]
  - REFUSAL OF TREATMENT BY PATIENT [None]
  - VISION BLURRED [None]
  - VISUAL ACUITY REDUCED [None]
